FAERS Safety Report 14220983 (Version 1)
Quarter: 2017Q4

REPORT INFORMATION
  Report Type: Report from Study
  Country: GB (occurrence: GB)
  Receive Date: 20171123
  Receipt Date: 20171123
  Transmission Date: 20180321
  Serious: Yes (Death)
  Sender: FDA-Public Use
  Company Number: GB-JNJFOC-20171126278

PATIENT
  Sex: Male
  Weight: 61.5 kg

DRUGS (4)
  1. DICLOFENAC SODIUM. [Concomitant]
     Active Substance: DICLOFENAC SODIUM
     Route: 065
     Dates: start: 19950715
  2. LACIDIPINE [Concomitant]
     Active Substance: LACIDIPINE
     Route: 065
     Dates: start: 19980715
  3. SULPHASALAZINE [Concomitant]
     Active Substance: SULFASALAZINE
     Route: 065
     Dates: start: 20110715
  4. STELARA [Suspect]
     Active Substance: USTEKINUMAB
     Indication: PSORIASIS
     Route: 058
     Dates: start: 20120906

REACTIONS (2)
  - Left ventricular hypertrophy [Fatal]
  - Pneumonia [Fatal]
